FAERS Safety Report 18056324 (Version 1)
Quarter: 2020Q3

REPORT INFORMATION
  Report Type: Spontaneous
  Country: US (occurrence: US)
  Receive Date: 20200722
  Receipt Date: 20200722
  Transmission Date: 20201103
  Serious: Yes (Hospitalization)
  Sender: FDA-Public Use
  Company Number: US-AMERICAN REGENT INC-2020001480

PATIENT
  Age: 3 Year
  Sex: Male

DRUGS (13)
  1. TOPIRAMATE. [Suspect]
     Active Substance: TOPIRAMATE
     Indication: STATUS EPILEPTICUS
     Dosage: UNK UNK, QD
     Route: 065
  2. LEVETIRACETAM INJECTION (0517?3605?01) [Suspect]
     Active Substance: LEVETIRACETAM
     Indication: STATUS EPILEPTICUS
     Dosage: UNK
     Route: 042
  3. LEVETIRACETAM. [Suspect]
     Active Substance: LEVETIRACETAM
     Indication: STATUS EPILEPTICUS
     Dosage: UNK UNK, QD
     Route: 065
  4. LACOSAMIDE. [Suspect]
     Active Substance: LACOSAMIDE
     Indication: STATUS EPILEPTICUS
     Dosage: UNK
     Route: 042
  5. MIDAZOLAM. [Suspect]
     Active Substance: MIDAZOLAM
     Dosage: 1.2 MG/KG/H
     Route: 042
  6. LORAZEPAM. [Suspect]
     Active Substance: LORAZEPAM
     Indication: STATUS EPILEPTICUS
     Dosage: UNK
     Route: 042
  7. KETAMINE [Concomitant]
     Active Substance: KETAMINE
     Indication: STATUS EPILEPTICUS
     Dosage: 1 MG/KG (BOLUS)
  8. MIDAZOLAM. [Suspect]
     Active Substance: MIDAZOLAM
     Indication: STATUS EPILEPTICUS
     Dosage: UNK
     Route: 045
  9. PROPOFOL. [Suspect]
     Active Substance: PROPOFOL
     Indication: STATUS EPILEPTICUS
     Dosage: UNK, SEVERAL BOLUSES
  10. KETAMINE [Concomitant]
     Active Substance: KETAMINE
     Dosage: 0.5?2 MG/KG/H (MAINTENANCE INFUSION)
     Route: 042
  11. KETAMINE [Concomitant]
     Active Substance: KETAMINE
     Dosage: 2 MG/KG (ADDITIONAL BOLUS)
  12. FOSPHENYTOIN SODIUM INJECTION, USP (025?21) [Suspect]
     Active Substance: FOSPHENYTOIN SODIUM
     Indication: STATUS EPILEPTICUS
     Dosage: UNK
     Route: 042
  13. KETAMINE [Concomitant]
     Active Substance: KETAMINE
     Dosage: 3 MG/KG (INCREMENT OF THE INFUSION RATE)
     Route: 042

REACTIONS (4)
  - Drug ineffective for unapproved indication [Recovering/Resolving]
  - Product use in unapproved indication [Unknown]
  - Product use issue [Unknown]
  - Status epilepticus [Recovering/Resolving]
